FAERS Safety Report 21336761 (Version 1)
Quarter: 2022Q3

REPORT INFORMATION
  Report Type: Report from Study
  Country: US (occurrence: None)
  Receive Date: 20220915
  Receipt Date: 20220915
  Transmission Date: 20221026
  Serious: Yes (Other)
  Sender: FDA-Public Use
  Company Number: 2022A316032

PATIENT
  Age: 22724 Day
  Sex: Male
  Weight: 63.8 kg

DRUGS (2)
  1. TAGRISSO [Suspect]
     Active Substance: OSIMERTINIB
     Indication: Lung neoplasm malignant
     Dosage: 40.0MG UNKNOWN
     Route: 048
  2. AMIVANTAMAB [Concomitant]
     Active Substance: AMIVANTAMAB
     Indication: Neoplasm malignant
     Dosage: 1650.0MG UNKNOWN
     Dates: start: 20220321

REACTIONS (1)
  - Liver function test abnormal [Recovering/Resolving]

NARRATIVE: CASE EVENT DATE: 20220822
